FAERS Safety Report 8496262-4 (Version None)
Quarter: 2012Q3

REPORT INFORMATION
  Report Type: 
  Country: None (occurrence: None)
  Receive Date: 20120709
  Receipt Date: 20120625
  Transmission Date: 20120928
  Serious: No
  Sender: FDA-Public Use
  Company Number: US-ASTRAZENECA-2012SE42934

PATIENT
  Age: 32 Year
  Sex: Male

DRUGS (1)
  1. SEROQUEL XR [Suspect]
     Route: 048

REACTIONS (3)
  - HALLUCINATION, AUDITORY [None]
  - DRUG INEFFECTIVE [None]
  - MEMORY IMPAIRMENT [None]
